FAERS Safety Report 6637066-4 (Version None)
Quarter: 2010Q1

REPORT INFORMATION
  Report Type: 
  Country: None (occurrence: None)
  Receive Date: 20100316
  Receipt Date: 20100222
  Transmission Date: 20100710
  Serious: Yes (Hospitalization)
  Sender: FDA-Public Use
  Company Number: US-AMGEN-KDC398307

PATIENT
  Age: 54 Year

DRUGS (6)
  1. NEULASTA [Suspect]
     Indication: DRUG USE FOR UNKNOWN INDICATION
  2. TRASTUZUMAB [Suspect]
  3. DOCETAXEL [Suspect]
  4. BEVACIZUMAB [Suspect]
  5. EPIRUBICIN [Suspect]
  6. CYCLOPHOSPHAMIDE [Suspect]

REACTIONS (1)
  - MYOSITIS [None]
